FAERS Safety Report 23701179 (Version 1)
Quarter: 2024Q2

REPORT INFORMATION
  Report Type: Spontaneous
  Country: CN (occurrence: CN)
  Receive Date: 20240403
  Receipt Date: 20240403
  Transmission Date: 20240716
  Serious: Yes (Disabling, Other)
  Sender: FDA-Public Use
  Company Number: None

PATIENT
  Age: 65 Year
  Sex: Male
  Weight: 66 kg

DRUGS (8)
  1. CYCLOPHOSPHAMIDE [Suspect]
     Active Substance: CYCLOPHOSPHAMIDE
     Indication: Non-Hodgkin^s lymphoma
     Dosage: 1.0 G, ONE TIME IN ONE DAY, DILUTED WITH 100 ML OF 0.9% NORMAL SALINE (NS), D1, AS A PART OF CHOP RE
     Route: 041
     Dates: start: 20240302, end: 20240302
  2. EPIRUBICIN HYDROCHLORIDE [Suspect]
     Active Substance: EPIRUBICIN HYDROCHLORIDE
     Indication: Non-Hodgkin^s lymphoma
     Dosage: 70 MG, ONE TIME IN ONE DAY, DILUTED WITH 100 ML OF 0.9% NORMAL SALINE (NS), D1, AS A PART OF CHOP RE
     Route: 041
     Dates: start: 20240302, end: 20240302
  3. VINCRISTINE SULFATE [Suspect]
     Active Substance: VINCRISTINE SULFATE
     Indication: Non-Hodgkin^s lymphoma
     Dosage: 2 MG, ONE TIME IN ONE DAY, DILUTED WITH 100 ML OF 0.9% NORMAL SALINE (NS), D1, AS A PART OF CHOP REG
     Route: 041
     Dates: start: 20240302, end: 20240302
  4. CAFFEINE [Suspect]
     Active Substance: CAFFEINE
     Indication: Drug therapy
     Dosage: 60 MG, TWO TIMES IN EVERY ONE DAY
     Route: 048
     Dates: start: 20240302, end: 20240306
  5. SODIUM CHLORIDE [Suspect]
     Active Substance: SODIUM CHLORIDE
     Indication: Medication dilution
     Dosage: 100 ML, STRENGTH: 0.9%, ONE TIME IN ONE DAY, USED TO DILUTE 1.0 G OF CYCLOPHOSPHAMIDE, D1
     Route: 041
     Dates: start: 20240302, end: 20240302
  6. SODIUM CHLORIDE [Suspect]
     Active Substance: SODIUM CHLORIDE
     Dosage: 100 ML, STRENGTH: 0.9%, ONE TIME IN ONE DAY, USED TO DILUTE 70 MG OF EPIRUBICIN, D1
     Route: 041
     Dates: start: 20240302, end: 20240302
  7. SODIUM CHLORIDE [Suspect]
     Active Substance: SODIUM CHLORIDE
     Dosage: 100 ML, STRENGTH: 0.9%, ONE TIME IN ONE DAY, USED TO DILUTE 2 MG OF VINCRISTINE, D1
     Route: 041
     Dates: start: 20240302, end: 20240302
  8. PREDNISONE [Suspect]
     Active Substance: PREDNISONE
     Indication: Non-Hodgkin^s lymphoma
     Dosage: 60 MG, BID, D1-5, AS A PART OF CHOP REGIMEN
     Route: 065
     Dates: start: 20240302, end: 20240306

REACTIONS (2)
  - Non-Hodgkin^s lymphoma [Unknown]
  - Myelosuppression [Not Recovered/Not Resolved]

NARRATIVE: CASE EVENT DATE: 20240321
